FAERS Safety Report 25807386 (Version 1)
Quarter: 2025Q3

REPORT INFORMATION
  Report Type: Spontaneous
  Country: US (occurrence: US)
  Receive Date: 20250916
  Receipt Date: 20250916
  Transmission Date: 20251021
  Serious: No
  Sender: NOBELPHARMA
  Company Number: US-NPA-2025-AER-01558

PATIENT
  Sex: Female
  Weight: 96.62 kg

DRUGS (15)
  1. HYFTOR [Suspect]
     Active Substance: SIROLIMUS
     Indication: Tuberous sclerosis complex
     Route: 061
     Dates: start: 20250808
  2. CALCIUM\VITAMIN D [Concomitant]
     Active Substance: CALCIUM\VITAMIN D
  3. CLOBAZAM [Concomitant]
     Active Substance: CLOBAZAM
  4. HYDROXYZINE HYDROCHLORIDE [Concomitant]
     Active Substance: HYDROXYZINE HYDROCHLORIDE
  5. LEVALBUTEROL [Concomitant]
     Active Substance: LEVALBUTEROL
  6. LEVETIRACETAM [Concomitant]
     Active Substance: LEVETIRACETAM
  7. MELATONIN [Concomitant]
     Active Substance: MELATONIN
  8. METOPROLOL SUCCINATE [Concomitant]
     Active Substance: METOPROLOL SUCCINATE
  9. MIDAZOLAM [Concomitant]
     Active Substance: MIDAZOLAM
  10. MIRENA [Concomitant]
     Active Substance: LEVONORGESTREL
  11. MULTIVITAMIN ADULT [Concomitant]
  12. NALTREXONE [Concomitant]
     Active Substance: NALTREXONE
  13. PHENYTEK [Concomitant]
     Active Substance: PHENYTOIN SODIUM
  14. SUMATRIPTAN [Concomitant]
     Active Substance: SUMATRIPTAN
  15. VITAMIN B6 [Concomitant]
     Active Substance: PYRIDOXINE HYDROCHLORIDE

REACTIONS (3)
  - Dry skin [Unknown]
  - Off label use [Unknown]
  - Treatment noncompliance [Unknown]
